FAERS Safety Report 23404697 (Version 4)
Quarter: 2024Q1

REPORT INFORMATION
  Report Type: Spontaneous
  Country: US (occurrence: US)
  Receive Date: 20240116
  Receipt Date: 20240327
  Transmission Date: 20240409
  Serious: No
  Sender: FDA-Public Use
  Company Number: US-Blueprint Medicines Corporation-1950

PATIENT
  Sex: Female

DRUGS (4)
  1. AYVAKIT [Suspect]
     Active Substance: AVAPRITINIB
     Indication: Systemic mastocytosis
     Route: 065
     Dates: start: 20231024
  2. SYSTANE COMPLETE [Concomitant]
     Active Substance: PROPYLENE GLYCOL
     Indication: Product used for unknown indication
     Route: 065
  3. SYSTANE COMPLETE [Concomitant]
     Active Substance: PROPYLENE GLYCOL
  4. SYSTANE COMPLETE [Concomitant]
     Active Substance: PROPYLENE GLYCOL

REACTIONS (10)
  - Red blood cell count decreased [Unknown]
  - Stress [Unknown]
  - Ear pain [Unknown]
  - Nasopharyngitis [Unknown]
  - Secretion discharge [Unknown]
  - Insomnia [Unknown]
  - Nasal congestion [Unknown]
  - Cough [Unknown]
  - Viral infection [Unknown]
  - White blood cell count abnormal [Unknown]
